FAERS Safety Report 14591955 (Version 4)
Quarter: 2018Q2

REPORT INFORMATION
  Report Type: Spontaneous
  Country: US (occurrence: US)
  Receive Date: 20180302
  Receipt Date: 20180604
  Transmission Date: 20180711
  Serious: Yes (Other)
  Sender: FDA-Public Use
  Company Number: US-SA-2018SA017982

PATIENT
  Age: 27 Year
  Sex: Female

DRUGS (7)
  1. METHOTREXATE. [Concomitant]
     Active Substance: METHOTREXATE
     Indication: RHEUMATOID ARTHRITIS
     Dosage: 75 MG, QW
     Dates: start: 20170717, end: 20180323
  2. KEVZARA [Suspect]
     Active Substance: SARILUMAB
     Indication: RHEUMATOID ARTHRITIS
     Dosage: 200 MG,QOW
     Route: 058
     Dates: start: 20171108, end: 20180312
  3. KEVZARA [Suspect]
     Active Substance: SARILUMAB
     Dosage: 200 MG,QOW
     Route: 058
     Dates: start: 20171108, end: 20180312
  4. PLAQUENIL S [Concomitant]
     Active Substance: HYDROXYCHLOROQUINE SULFATE
     Indication: RHEUMATOID ARTHRITIS
     Dosage: 200 MG, BID
     Dates: start: 20170717
  5. PLENDIL [Concomitant]
     Active Substance: FELODIPINE
     Indication: RHEUMATOID ARTHRITIS
     Dosage: 10 MG, QD
     Dates: start: 20170717
  6. FOLIC ACID. [Concomitant]
     Active Substance: FOLIC ACID
     Indication: RHEUMATOID ARTHRITIS
     Dosage: 1 MG, QD
     Dates: start: 20170717, end: 20180323
  7. PREDNISONE. [Concomitant]
     Active Substance: PREDNISONE
     Indication: RHEUMATOID ARTHRITIS
     Dosage: 5 MG, QD
     Dates: start: 20170717

REACTIONS (7)
  - Loss of personal independence in daily activities [Recovered/Resolved]
  - Drug ineffective [Unknown]
  - Nausea [Recovered/Resolved]
  - Fatigue [Recovered/Resolved]
  - Vomiting [Recovered/Resolved]
  - Arthralgia [Recovered/Resolved]
  - Rheumatoid arthritis [Recovered/Resolved]

NARRATIVE: CASE EVENT DATE: 20180104
